FAERS Safety Report 21965110 (Version 4)
Quarter: 2023Q2

REPORT INFORMATION
  Report Type: Report from Study
  Country: US (occurrence: US)
  Receive Date: 20230207
  Receipt Date: 20230626
  Transmission Date: 20230721
  Serious: Yes (Other)
  Sender: FDA-Public Use
  Company Number: US-ABBVIE-4297892

PATIENT
  Age: 74 Year
  Sex: Male

DRUGS (2)
  1. IMBRUVICA [Suspect]
     Active Substance: IBRUTINIB
     Indication: Waldenstrom^s macroglobulinaemia
     Route: 048
  2. IMBRUVICA [Suspect]
     Active Substance: IBRUTINIB
     Indication: Waldenstrom^s macroglobulinaemia
     Route: 048
     Dates: start: 20220713

REACTIONS (8)
  - Neovascular age-related macular degeneration [Unknown]
  - Myalgia [Unknown]
  - Sinus congestion [Unknown]
  - Dyspepsia [Unknown]
  - Arthralgia [Unknown]
  - Pain [Unknown]
  - Bradykinesia [Unknown]
  - Adhesion [Unknown]

NARRATIVE: CASE EVENT DATE: 20221201
